FAERS Safety Report 16202067 (Version 3)
Quarter: 2019Q3

REPORT INFORMATION
  Report Type: Report from Study
  Country: None (occurrence: US)
  Receive Date: 20190416
  Receipt Date: 20190929
  Transmission Date: 20191004
  Serious: Yes (Other)
  Sender: FDA-Public Use
  Company Number: US-ABBVIE-19K-163-2740842-00

PATIENT
  Sex: Male
  Weight: 136.2 kg

DRUGS (1)
  1. HUMIRA [Suspect]
     Active Substance: ADALIMUMAB
     Indication: HIDRADENITIS
     Dosage: EVERY TUESDAY
     Route: 058

REACTIONS (6)
  - Tissue injury [Unknown]
  - Hernia [Unknown]
  - Tendon rupture [Unknown]
  - Haemorrhage [Unknown]
  - Muscle rupture [Unknown]
  - Joint range of motion decreased [Unknown]
